FAERS Safety Report 11238317 (Version 2)
Quarter: 2015Q3

REPORT INFORMATION
  Report Type: Spontaneous
  Country: SG (occurrence: SG)
  Receive Date: 20150704
  Receipt Date: 20150716
  Transmission Date: 20151125
  Serious: Yes (Hospitalization)
  Sender: FDA-Public Use
  Company Number: SG-APOTEX-2015AP010257

PATIENT

DRUGS (1)
  1. CARBAMAZEPINE. [Suspect]
     Active Substance: CARBAMAZEPINE
     Indication: NERVOUS SYSTEM DISORDER
     Route: 065

REACTIONS (4)
  - Erythema [Recovered/Resolved]
  - Lip swelling [Recovered/Resolved]
  - Rash maculo-papular [Recovered/Resolved]
  - Rash [Recovered/Resolved]
